FAERS Safety Report 5920241-1 (Version None)
Quarter: 2008Q4

REPORT INFORMATION
  Report Type: 
  Country: None (occurrence: None)
  Receive Date: 20081016
  Receipt Date: 20081013
  Transmission Date: 20090506
  Serious: Yes (Other)
  Sender: FDA-Public Use
  Company Number: US-BAYER-1199510999

PATIENT
  Age: 60 Year
  Sex: Female

DRUGS (2)
  1. CIPRO [Suspect]
     Indication: SEPSIS
     Route: 048
     Dates: start: 19940101, end: 19950501
  2. BLOOD-TYPE TREATMENT [Concomitant]

REACTIONS (2)
  - ARTHRALGIA [None]
  - TENDON RUPTURE [None]
